FAERS Safety Report 9697551 (Version 1)
Quarter: 2013Q4

REPORT INFORMATION
  Report Type: Spontaneous
  Country: US (occurrence: None)
  Receive Date: 20131119
  Receipt Date: 20131119
  Transmission Date: 20140711
  Serious: Yes (Other)
  Sender: FDA-Public Use
  Company Number: None

PATIENT
  Age: 24 Year
  Sex: Female
  Weight: 68.04 kg

DRUGS (4)
  1. HUMALOG [Suspect]
     Indication: TYPE 1 DIABETES MELLITUS
     Dosage: 100 UNITS INSULIN PUMP WITH BASAL RATES AND BOLUSES FOR MEALS INSULIN PUMP INJECTION
     Dates: start: 20131101, end: 20131108
  2. SELEXA [Concomitant]
  3. MEDTRONIC INSULIN PUMP [Concomitant]
  4. NOVALOG INSULIN [Concomitant]

REACTIONS (2)
  - Blood glucose increased [None]
  - Product substitution issue [None]
